FAERS Safety Report 18553583 (Version 2)
Quarter: 2020Q4

REPORT INFORMATION
  Report Type: Report from Study
  Country: None (occurrence: US)
  Receive Date: 20201127
  Receipt Date: 20201215
  Transmission Date: 20210114
  Serious: Yes (Hospitalization)
  Sender: FDA-Public Use
  Company Number: US-BIOVITRUM-2020US6664

PATIENT
  Age: 59 Year
  Sex: Male

DRUGS (5)
  1. KINERET [Suspect]
     Active Substance: ANAKINRA
     Route: 058
  2. KINERET [Suspect]
     Active Substance: ANAKINRA
     Indication: PRODUCT USED FOR UNKNOWN INDICATION
     Route: 058
  3. PREDNISONE. [Concomitant]
     Active Substance: PREDNISONE
  4. METHOTREXATE. [Concomitant]
     Active Substance: METHOTREXATE
  5. MEPRON [Concomitant]
     Active Substance: ATOVAQUONE

REACTIONS (3)
  - Pneumonia [Unknown]
  - Product dose omission issue [Not Recovered/Not Resolved]
  - Infection [Unknown]

NARRATIVE: CASE EVENT DATE: 20201118
